FAERS Safety Report 24116165 (Version 1)
Quarter: 2024Q3

REPORT INFORMATION
  Report Type: Spontaneous
  Country: US (occurrence: US)
  Receive Date: 20240722
  Receipt Date: 20240722
  Transmission Date: 20241017
  Serious: No
  Sender: AUROBINDO
  Company Number: US-AUROBINDO-AUR-APL-2024-019502

PATIENT
  Age: 90 Year
  Sex: Female
  Weight: 83.9 kg

DRUGS (4)
  1. AMIODARONE HYDROCHLORIDE [Suspect]
     Active Substance: AMIODARONE HYDROCHLORIDE
     Indication: Atrial fibrillation
     Dosage: UNK, TWO TIMES A DAY (HALF IN THE MORNING AND HALF AT NI GHT)
     Route: 048
  2. XARELTO [Concomitant]
     Active Substance: RIVAROXABAN
     Indication: Anticoagulant therapy
     Dosage: UNK
     Route: 065
  3. LOSARTAN [Concomitant]
     Active Substance: LOSARTAN
     Indication: Cardiac disorder
     Dosage: UNK
     Route: 065
  4. METOPROLOL [Concomitant]
     Active Substance: METOPROLOL
     Indication: Cardiac disorder
     Dosage: UNK
     Route: 065

REACTIONS (7)
  - Gait disturbance [Unknown]
  - Insomnia [Unknown]
  - Coordination abnormal [Unknown]
  - Asthenia [Unknown]
  - Alopecia [Unknown]
  - Depression [Unknown]
  - Constipation [Unknown]
